FAERS Safety Report 5524267-1 (Version None)
Quarter: 2007Q4

REPORT INFORMATION
  Report Type: 
  Country: None (occurrence: None)
  Receive Date: 20071121
  Receipt Date: 20071109
  Transmission Date: 20080405
  Serious: Yes (Hospitalization)
  Sender: FDA-Public Use
  Company Number: PT-PFIZER INC-2007085477

PATIENT
  Sex: Female

DRUGS (1)
  1. XANAX XR [Suspect]
     Route: 048

REACTIONS (1)
  - HYPERSENSITIVITY [None]
